FAERS Safety Report 4444328-8 (Version None)
Quarter: 2004Q3

REPORT INFORMATION
  Report Type: 
  Country: None (occurrence: None)
  Receive Date: 20040729
  Receipt Date: 20031201
  Transmission Date: 20050211
  Serious: Yes (Death)
  Sender: FDA-Public Use
  Company Number: USA-2003-0011739

PATIENT
  Age: 48 Year
  Sex: Female
  Weight: 116.1 kg

DRUGS (3)
  1. MORPHINE SUL TAB [Suspect]
  2. VENLAFAXINE HCL [Suspect]
  3. CAFFEINE (CAFFEINE) [Suspect]

REACTIONS (1)
  - OVERDOSE [None]
